FAERS Safety Report 7023931-5 (Version None)
Quarter: 2010Q4

REPORT INFORMATION
  Report Type: 
  Country: None (occurrence: None)
  Receive Date: 20101001
  Receipt Date: 20100928
  Transmission Date: 20110411
  Serious: Yes (Other)
  Sender: FDA-Public Use
  Company Number: AU-WYE-G06730710

PATIENT
  Sex: Female

DRUGS (2)
  1. PREMIA CONTINUOUS [Suspect]
     Dosage: UNKNOWN
  2. PREMIA CONTINUOUS [Suspect]
     Dosage: UNKNOWN

REACTIONS (5)
  - HYPOAESTHESIA [None]
  - MYALGIA [None]
  - NEURALGIA [None]
  - PARAESTHESIA [None]
  - SURGERY [None]
